FAERS Safety Report 14558068 (Version 2)
Quarter: 2018Q1

REPORT INFORMATION
  Report Type: Report from Study
  Country: BR (occurrence: BR)
  Receive Date: 20180221
  Receipt Date: 20180306
  Transmission Date: 20180509
  Serious: Yes (Hospitalization, Other)
  Sender: FDA-Public Use
  Company Number: PHHY2018BR027701

PATIENT
  Sex: Male
  Weight: 60 kg

DRUGS (2)
  1. INDAPAMIDE. [Concomitant]
     Active Substance: INDAPAMIDE
     Indication: DIURETIC THERAPY
     Dosage: 1 TABLET/2X A WEEK
     Route: 048
  2. EXELON PATCH [Suspect]
     Active Substance: RIVASTIGMINE
     Indication: DEMENTIA ALZHEIMER^S TYPE
     Dosage: 13.3 MG, QD PATCH 15 (CM2)
     Route: 062
     Dates: start: 2005

REACTIONS (13)
  - Pneumonia [Recovered/Resolved]
  - Mouth haemorrhage [Recovered/Resolved]
  - Cardiovascular insufficiency [Unknown]
  - Hypertension [Unknown]
  - Blood cholesterol increased [Unknown]
  - Product adhesion issue [Unknown]
  - Urinary tract infection [Recovered/Resolved]
  - Fall [Recovered/Resolved]
  - Head injury [Recovering/Resolving]
  - Pyrexia [Recovering/Resolving]
  - Epistaxis [Recovered/Resolved]
  - Gastric ulcer [Recovering/Resolving]
  - Diabetes mellitus [Unknown]
